FAERS Safety Report 11196135 (Version 2)
Quarter: 2015Q3

REPORT INFORMATION
  Report Type: Spontaneous
  Country: JP (occurrence: JP)
  Receive Date: 20150617
  Receipt Date: 20150910
  Transmission Date: 20151125
  Serious: Yes (Other)
  Sender: FDA-Public Use
  Company Number: JP-ABBVIE-15K-087-1408037-00

PATIENT
  Sex: Female

DRUGS (1)
  1. HUMIRA [Suspect]
     Active Substance: ADALIMUMAB
     Indication: RHEUMATOID ARTHRITIS
     Route: 058
     Dates: start: 2013

REACTIONS (10)
  - Hypersensitivity [Unknown]
  - Osteoporosis [Unknown]
  - Eczema [Unknown]
  - Neoplasm [Unknown]
  - Macule [Unknown]
  - Blindness unilateral [Unknown]
  - Alopecia [Unknown]
  - Fatigue [Unknown]
  - Eye pain [Unknown]
  - Eye injury [Unknown]

NARRATIVE: CASE EVENT DATE: 2013
